FAERS Safety Report 7574946 (Version 3)
Quarter: 2012Q4

REPORT INFORMATION
  Report Type: 
  Country: CA (occurrence: CA)
  Receive Date: 20100907
  Receipt Date: 20120928
  Transmission Date: 20130627
  Serious: Yes (Hospitalization, Other)
  Sender: FDA-Public Use
  Company Number: CA-ROCHE-724844

PATIENT
  Age: 55 Year
  Sex: Female
  Weight: 67 kg

DRUGS (2)
  1. HERCEPTIN [Suspect]
     Indication: BREAST CANCER
     Dosage: STOPPED AFTER THREE CYCLES
     Route: 042
  2. TAXOL [Suspect]
     Indication: BREAST CANCER
     Dosage: STOPPED AFTER THREE CYCLES
     Route: 042

REACTIONS (5)
  - Posterior reversible encephalopathy syndrome [Recovered/Resolved]
  - Clonic convulsion [Unknown]
  - Hypertension [Unknown]
  - Hypokalaemia [Unknown]
  - Hyponatraemia [Unknown]
